FAERS Safety Report 14151844 (Version 1)
Quarter: 2017Q4

REPORT INFORMATION
  Report Type: Spontaneous
  Country: US (occurrence: US)
  Receive Date: 20171102
  Receipt Date: 20171102
  Transmission Date: 20180321
  Serious: No
  Sender: FDA-Public Use
  Company Number: US-SUN PHARMACEUTICAL INDUSTRIES LTD-2017US-134868

PATIENT
  Sex: Female

DRUGS (1)
  1. LORATADINE AND PSEUDOEPHEDRINE SULFATE [Suspect]
     Active Substance: LORATADINE\PSEUDOEPHEDRINE SULFATE
     Indication: CONJUNCTIVAL HYPERAEMIA
     Dosage: UNK
     Route: 065
     Dates: start: 2017

REACTIONS (6)
  - Nausea [Recovered/Resolved]
  - Therapeutic response decreased [Recovered/Resolved]
  - Feeling jittery [Unknown]
  - Insomnia [Unknown]
  - Disturbance in attention [Unknown]
  - Drug interaction [Unknown]

NARRATIVE: CASE EVENT DATE: 2017
